FAERS Safety Report 6019554-7 (Version None)
Quarter: 2008Q4

REPORT INFORMATION
  Report Type: 
  Country: None (occurrence: None)
  Receive Date: 20081224
  Receipt Date: 20081215
  Transmission Date: 20090506
  Serious: Yes (Other)
  Sender: FDA-Public Use
  Company Number: PHHY2008DE32111

PATIENT
  Sex: Female

DRUGS (1)
  1. LEPONEX [Suspect]
     Indication: SCHIZOPHRENIA
     Dosage: 400 MG / DAY
     Route: 048
     Dates: start: 20010101

REACTIONS (4)
  - ACTINIC KERATOSIS [None]
  - CONSTIPATION [None]
  - RESTLESSNESS [None]
  - SALIVARY HYPERSECRETION [None]
